FAERS Safety Report 25964447 (Version 1)
Quarter: 2025Q4

REPORT INFORMATION
  Report Type: Spontaneous
  Country: EU (occurrence: EU)
  Receive Date: 20251027
  Receipt Date: 20251027
  Transmission Date: 20260118
  Serious: Yes (Hospitalization)
  Sender: MYLAN
  Company Number: None

PATIENT
  Age: 52 Year
  Sex: Female

DRUGS (24)
  1. LYRICA [Suspect]
     Active Substance: PREGABALIN
     Indication: Pain
     Dosage: 2 DOSAGE FORM, QD
     Dates: end: 20250523
  2. LYRICA [Suspect]
     Active Substance: PREGABALIN
     Dosage: 2 DOSAGE FORM, QD
     Route: 048
     Dates: end: 20250523
  3. LYRICA [Suspect]
     Active Substance: PREGABALIN
     Dosage: 2 DOSAGE FORM, QD
     Route: 048
     Dates: end: 20250523
  4. LYRICA [Suspect]
     Active Substance: PREGABALIN
     Dosage: 2 DOSAGE FORM, QD
     Dates: end: 20250523
  5. FENTANYL [Suspect]
     Active Substance: FENTANYL
     Indication: Pain
     Dosage: 1 DOSAGE FORM, Q3D (72 HR) (12 MICROGRAMS/HOUR (2.1 MG/5.25CM?))
     Dates: end: 20250523
  6. FENTANYL [Suspect]
     Active Substance: FENTANYL
     Dosage: 1 DOSAGE FORM, Q3D (72 HR) (12 MICROGRAMS/HOUR (2.1 MG/5.25CM?))
     Route: 062
     Dates: end: 20250523
  7. FENTANYL [Suspect]
     Active Substance: FENTANYL
     Dosage: 1 DOSAGE FORM, Q3D (72 HR) (12 MICROGRAMS/HOUR (2.1 MG/5.25CM?))
     Route: 062
     Dates: end: 20250523
  8. FENTANYL [Suspect]
     Active Substance: FENTANYL
     Dosage: 1 DOSAGE FORM, Q3D (72 HR) (12 MICROGRAMS/HOUR (2.1 MG/5.25CM?))
     Dates: end: 20250523
  9. TRIMEPRAZINE [Suspect]
     Active Substance: TRIMEPRAZINE
     Indication: Pain
     Dosage: 20 GTT DROPS, QD
     Dates: end: 20250523
  10. TRIMEPRAZINE [Suspect]
     Active Substance: TRIMEPRAZINE
     Dosage: 20 GTT DROPS, QD
     Route: 048
     Dates: end: 20250523
  11. TRIMEPRAZINE [Suspect]
     Active Substance: TRIMEPRAZINE
     Dosage: 20 GTT DROPS, QD
     Route: 048
     Dates: end: 20250523
  12. TRIMEPRAZINE [Suspect]
     Active Substance: TRIMEPRAZINE
     Dosage: 20 GTT DROPS, QD
     Dates: end: 20250523
  13. OXAZEPAM [Suspect]
     Active Substance: OXAZEPAM
     Indication: Pain
     Dosage: 1 DOSAGE FORM, QD
     Dates: end: 20250523
  14. OXAZEPAM [Suspect]
     Active Substance: OXAZEPAM
     Dosage: 1 DOSAGE FORM, QD
     Route: 048
     Dates: end: 20250523
  15. OXAZEPAM [Suspect]
     Active Substance: OXAZEPAM
     Dosage: 1 DOSAGE FORM, QD
     Route: 048
     Dates: end: 20250523
  16. OXAZEPAM [Suspect]
     Active Substance: OXAZEPAM
     Dosage: 1 DOSAGE FORM, QD
     Dates: end: 20250523
  17. PLAVIX [Suspect]
     Active Substance: CLOPIDOGREL BISULFATE
     Indication: Ischaemic cardiomyopathy
     Dosage: 1 DOSAGE FORM, QD
     Dates: end: 20250430
  18. PLAVIX [Suspect]
     Active Substance: CLOPIDOGREL BISULFATE
     Dosage: 1 DOSAGE FORM, QD
     Route: 048
     Dates: end: 20250430
  19. PLAVIX [Suspect]
     Active Substance: CLOPIDOGREL BISULFATE
     Dosage: 1 DOSAGE FORM, QD
     Route: 048
     Dates: end: 20250430
  20. PLAVIX [Suspect]
     Active Substance: CLOPIDOGREL BISULFATE
     Dosage: 1 DOSAGE FORM, QD
     Dates: end: 20250430
  21. XARELTO [Suspect]
     Active Substance: RIVAROXABAN
     Indication: Ischaemic cardiomyopathy
     Dosage: 1 DOSAGE FORM, QD
     Dates: end: 20250523
  22. XARELTO [Suspect]
     Active Substance: RIVAROXABAN
     Dosage: 1 DOSAGE FORM, QD
     Route: 048
     Dates: end: 20250523
  23. XARELTO [Suspect]
     Active Substance: RIVAROXABAN
     Dosage: 1 DOSAGE FORM, QD
     Route: 048
     Dates: end: 20250523
  24. XARELTO [Suspect]
     Active Substance: RIVAROXABAN
     Dosage: 1 DOSAGE FORM, QD
     Dates: end: 20250523

REACTIONS (3)
  - Altered state of consciousness [Recovered/Resolved]
  - Gastrointestinal haemorrhage [Recovered/Resolved]
  - Disturbance in attention [Recovered/Resolved]

NARRATIVE: CASE EVENT DATE: 20250401
